FAERS Safety Report 4576287-1 (Version None)
Quarter: 2005Q1

REPORT INFORMATION
  Report Type: 
  Country: None (occurrence: None)
  Receive Date: 20050207
  Receipt Date: 20041202
  Transmission Date: 20050727
  Serious: Yes (Other)
  Sender: FDA-Public Use
  Company Number: 2004101080

PATIENT
  Age: 62 Year
  Sex: Male

DRUGS (1)
  1. BEXTRA [Suspect]
     Indication: MONARTHRITIS
     Dosage: (20 MG), ORAL
     Route: 048
     Dates: start: 20040915, end: 20040920

REACTIONS (2)
  - DRUG HYPERSENSITIVITY [None]
  - URTICARIA GENERALISED [None]
